FAERS Safety Report 7297188-4 (Version None)
Quarter: 2011Q1

REPORT INFORMATION
  Report Type: 
  Country: None (occurrence: None)
  Receive Date: 20110216
  Receipt Date: 20110211
  Transmission Date: 20110831
  Serious: No
  Sender: FDA-Public Use
  Company Number: US-PFIZER INC-2011031452

PATIENT
  Sex: Female
  Weight: 74.83 kg

DRUGS (8)
  1. ATENOLOL [Concomitant]
     Indication: ATRIAL FIBRILLATION
     Dosage: 25 MG, 1X/DAY
  2. PRAVASTATIN [Concomitant]
     Indication: BLOOD CHOLESTEROL INCREASED
  3. AMIODARONE [Concomitant]
     Indication: ATRIAL FIBRILLATION
     Dosage: 200 MG, 1X/DAY
  4. ACETYLSALICYLIC ACID [Concomitant]
     Dosage: UNK
  5. PREMARIN [Suspect]
     Indication: METRORRHAGIA
     Dosage: 0.625 MG, UNK
     Dates: start: 20110101, end: 20110201
  6. AMIODARONE [Concomitant]
     Indication: BLOOD CHOLESTEROL INCREASED
  7. PRAVASTATIN [Concomitant]
     Indication: ATRIAL FIBRILLATION
     Dosage: 80 MG, 1X/DAY
  8. ATENOLOL [Concomitant]
     Indication: BLOOD CHOLESTEROL INCREASED

REACTIONS (3)
  - RASH MACULAR [None]
  - NIPPLE PAIN [None]
  - ERYTHEMA [None]
